FAERS Safety Report 9074948 (Version 1)
Quarter: 2013Q1

REPORT INFORMATION
  Report Type: Spontaneous
  Country: JP (occurrence: JP)
  Receive Date: 20130129
  Receipt Date: 20130129
  Transmission Date: 20140127
  Serious: Yes (Hospitalization)
  Sender: FDA-Public Use
  Company Number: JP-MYLANLABS-2013S1001093

PATIENT
  Age: 63 Year
  Sex: Female

DRUGS (1)
  1. THIAMAZOLE [Suspect]
     Indication: HYPERTHYROIDISM
     Dosage: 30MG/DAY
     Route: 065

REACTIONS (2)
  - Anti-neutrophil cytoplasmic antibody positive vasculitis [Recovering/Resolving]
  - Retinal artery occlusion [Recovering/Resolving]
